FAERS Safety Report 19993595 (Version 2)
Quarter: 2023Q1

REPORT INFORMATION
  Report Type: Spontaneous
  Country: CA (occurrence: CA)
  Receive Date: 20211026
  Receipt Date: 20230208
  Transmission Date: 20230417
  Serious: Yes (Hospitalization)
  Sender: FDA-Public Use
  Company Number: CA-002147023-NVSC2021CA235054

PATIENT
  Age: 47 Year
  Sex: Male

DRUGS (3)
  1. LUCENTIS [Suspect]
     Active Substance: RANIBIZUMAB
     Indication: Diabetic retinal oedema
     Route: 050
  2. LUCENTIS [Suspect]
     Active Substance: RANIBIZUMAB
     Route: 050
  3. BEVACIZUMAB [Suspect]
     Active Substance: BEVACIZUMAB
     Indication: Product used for unknown indication
     Route: 042

REACTIONS (19)
  - Aphonia [Recovered/Resolved]
  - Diabetic foot [Recovered/Resolved]
  - Increased insulin requirement [Recovered/Resolved]
  - Suture rupture [Recovered/Resolved]
  - Blindness transient [Recovered/Resolved]
  - Blood pressure increased [Recovered/Resolved]
  - Diabetic retinopathy [Recovered/Resolved]
  - Eye disorder [Recovered/Resolved]
  - Eye haemorrhage [Recovered/Resolved]
  - Hypoaesthesia [Recovered/Resolved]
  - Infection [Recovered/Resolved]
  - Malaise [Recovered/Resolved]
  - Ocular discomfort [Recovered/Resolved]
  - Stress [Recovered/Resolved]
  - Visual impairment [Recovered/Resolved]
  - Vitreous haemorrhage [Recovered/Resolved]
  - Vision blurred [Recovered/Resolved]
  - Vitreous floaters [Recovered/Resolved]
  - Inappropriate schedule of product administration [Unknown]
